FAERS Safety Report 6841849-5 (Version None)
Quarter: 2010Q3

REPORT INFORMATION
  Report Type: 
  Country: None (occurrence: None)
  Receive Date: 20100714
  Receipt Date: 20070716
  Transmission Date: 20110219
  Serious: No
  Sender: FDA-Public Use
  Company Number: US-PFIZER INC-2007059303

PATIENT
  Sex: Female
  Weight: 51.363 kg

DRUGS (4)
  1. CHANTIX [Suspect]
     Indication: SMOKING CESSATION THERAPY
     Dates: start: 20070707
  2. VITAMINS [Concomitant]
  3. VITAMIN C [Concomitant]
  4. SYNTHROID [Concomitant]
     Indication: HYPOTHYROIDISM

REACTIONS (9)
  - DRY EYE [None]
  - EYE PAIN [None]
  - FATIGUE [None]
  - LETHARGY [None]
  - MUSCLE SPASMS [None]
  - MUSCLE TIGHTNESS [None]
  - NAUSEA [None]
  - SLEEP DISORDER [None]
  - VOMITING [None]
